FAERS Safety Report 5658892-4 (Version None)
Quarter: 2008Q1

REPORT INFORMATION
  Report Type: 
  Country: None (occurrence: None)
  Receive Date: 20080310
  Receipt Date: 20070430
  Transmission Date: 20080703
  Serious: No
  Sender: FDA-Public Use
  Company Number: US-BAYER-200711343BCC

PATIENT
  Sex: Male
  Weight: 78 kg

DRUGS (3)
  1. ALEVE [Suspect]
     Indication: NECK PAIN
     Route: 048
  2. FLOMAX [Concomitant]
  3. DETROL [Concomitant]

REACTIONS (2)
  - MUSCULOSKELETAL PAIN [None]
  - NECK PAIN [None]
